FAERS Safety Report 9805929 (Version 1)
Quarter: 2014Q1

REPORT INFORMATION
  Report Type: Spontaneous
  Country: TR (occurrence: None)
  Receive Date: 20140107
  Receipt Date: 20140107
  Transmission Date: 20141002
  Serious: Yes (Hospitalization)
  Sender: FDA-Public Use
  Company Number: IPC201312-000550

PATIENT
  Age: 82 Year
  Sex: Female

DRUGS (6)
  1. WARFARIN [Suspect]
     Indication: ATRIAL FIBRILLATION
  2. ARTEMISIA ABSINTHIUM POLLEN [Suspect]
     Indication: OROPHARYNGEAL PAIN
  3. VALSARTAN-HYDROCHLOROTHIAZIDE (VALSARTAN, HYDROCHLOROTHIAZIDE) (VALSARTAN, HYDROCHLOROTHIAZIDE) [Concomitant]
  4. LEVOTHYROXINE (LEVOTHYROXINE) (LEVOTHYROXINE) [Concomitant]
  5. ESOMEPRAZOLE (ESOMEPRAZOLE) (ESOMEPRAZOLE) [Concomitant]
  6. NEBIVOLOL (NEBIVOLOL) (NEBIVOLOL) [Concomitant]

REACTIONS (4)
  - Melaena [None]
  - Abdominal pain [None]
  - International normalised ratio increased [None]
  - Drug interaction [None]
